FAERS Safety Report 12649799 (Version 2)
Quarter: 2016Q4

REPORT INFORMATION
  Report Type: Spontaneous
  Country: US (occurrence: US)
  Receive Date: 20160812
  Receipt Date: 20161127
  Transmission Date: 20170207
  Serious: Yes (Hospitalization, Other)
  Sender: FDA-Public Use
  Company Number: US-009507513-1608USA007151

PATIENT
  Age: 70 Year
  Sex: Female
  Weight: 65.31 kg

DRUGS (2)
  1. OLMESARTAN MEDOXOMIL. [Suspect]
     Active Substance: OLMESARTAN MEDOXOMIL
     Indication: HYPERTENSION
     Dosage: 40 MG, QD
     Route: 048
     Dates: start: 20110101, end: 201509
  2. COZAAR [Suspect]
     Active Substance: LOSARTAN POTASSIUM
     Indication: HYPERTENSION
     Dosage: UNKNOWN
     Route: 065
     Dates: start: 2015, end: 2016

REACTIONS (16)
  - Cerebrovascular accident [Recovered/Resolved]
  - Musculoskeletal disorder [Recovered/Resolved]
  - Drug ineffective [Recovered/Resolved]
  - Treatment noncompliance [Recovered/Resolved]
  - Fear of death [Recovered/Resolved]
  - Alopecia [Recovered/Resolved]
  - Weight decreased [Recovered/Resolved]
  - Back pain [Recovered/Resolved]
  - Atrial fibrillation [Recovered/Resolved]
  - Abdominal distension [Recovered/Resolved]
  - Inflammation [Recovered/Resolved]
  - Hospitalisation [Recovered/Resolved]
  - Asthma [Recovered/Resolved]
  - Brain injury [Recovered/Resolved]
  - Generalised oedema [Recovered/Resolved]
  - Vomiting [Recovered/Resolved]

NARRATIVE: CASE EVENT DATE: 2014
